FAERS Safety Report 4449139-5 (Version None)
Quarter: 2004Q3

REPORT INFORMATION
  Report Type: 
  Country: None (occurrence: None)
  Receive Date: 20040909
  Receipt Date: 20040902
  Transmission Date: 20050211
  Serious: Yes (Death, Other)
  Sender: FDA-Public Use
  Company Number: KII-2000-0006374

PATIENT
  Age: 29 Year
  Sex: Female

DRUGS (2)
  1. OXYCODONE HCL [Suspect]
     Indication: CANCER PAIN
  2. OXYCODONE HCL [Suspect]
     Indication: CANCER PAIN

REACTIONS (2)
  - CONDITION AGGRAVATED [None]
  - RECTAL CANCER [None]
